FAERS Safety Report 10511449 (Version 2)
Quarter: 2014Q4

REPORT INFORMATION
  Report Type: Spontaneous
  Country: US (occurrence: US)
  Receive Date: 20141010
  Receipt Date: 20141126
  Transmission Date: 20150528
  Serious: Yes (Hospitalization)
  Sender: FDA-Public Use
  Company Number: US-BAYER-2014-148714

PATIENT
  Age: 35 Year
  Sex: Female
  Weight: 47.62 kg

DRUGS (6)
  1. LEVOTHYROXINE [Concomitant]
     Active Substance: LEVOTHYROXINE
     Indication: HYPOTHYROIDISM
     Dosage: 0.1 MG, DAILY
     Route: 048
     Dates: start: 200611
  2. ADDERALL [Concomitant]
     Active Substance: AMPHETAMINE ASPARTATE\AMPHETAMINE SULFATE\DEXTROAMPHETAMINE SACCHARATE\DEXTROAMPHETAMINE SULFATE
     Indication: MONONUCLEOSIS SYNDROME
     Dosage: 20 MG, DAILY
     Route: 048
     Dates: start: 201110
  3. MIRENA [Suspect]
     Active Substance: LEVONORGESTREL
     Indication: CONTRACEPTION
     Dosage: 20 MCG/24HR, CONT
     Route: 015
     Dates: start: 20090518, end: 20120928
  4. SEROQUEL [Concomitant]
     Active Substance: QUETIAPINE FUMARATE
     Indication: SLEEP DISORDER
     Dosage: 200 MG, DALIY
     Dates: start: 201306
  5. PRISTIQ EXTENDED RELEASE [Concomitant]
     Active Substance: DESVENLAFAXINE SUCCINATE
     Dosage: 50 MG, DAILY
     Route: 048
     Dates: start: 20120928
  6. KEFLEX [Concomitant]
     Active Substance: CEPHALEXIN
     Dosage: 200 MG, BID
     Route: 048
     Dates: start: 20120928

REACTIONS (14)
  - Abdominal pain [Not Recovered/Not Resolved]
  - Scar [Not Recovered/Not Resolved]
  - Depression [Not Recovered/Not Resolved]
  - Fear [None]
  - Uterine perforation [Not Recovered/Not Resolved]
  - Pain [Not Recovered/Not Resolved]
  - Internal injury [Not Recovered/Not Resolved]
  - Medical device discomfort [Not Recovered/Not Resolved]
  - Depressed mood [Not Recovered/Not Resolved]
  - Genital haemorrhage [Not Recovered/Not Resolved]
  - Pelvic pain [Not Recovered/Not Resolved]
  - Injury [Not Recovered/Not Resolved]
  - Emotional distress [None]
  - Anxiety [Not Recovered/Not Resolved]

NARRATIVE: CASE EVENT DATE: 201203
